FAERS Safety Report 17980544 (Version 2)
Quarter: 2020Q3

REPORT INFORMATION
  Report Type: Other
  Country: US (occurrence: US)
  Receive Date: 20200704
  Receipt Date: 20200716
  Transmission Date: 20201103
  Serious: Yes (Death, Hospitalization)
  Sender: FDA-Public Use
  Company Number: US-ROCHE-2635008

PATIENT
  Age: 77 Year
  Sex: Female

DRUGS (1)
  1. CELLCEPT [Suspect]
     Active Substance: MYCOPHENOLATE MOFETIL\MYCOPHENOLATE MOFETIL HYDROCHLORIDE
     Indication: LIVER TRANSPLANT
     Dosage: 2 BID
     Route: 065

REACTIONS (4)
  - Acute kidney injury [Fatal]
  - Cystitis [Fatal]
  - Arrhythmia [Fatal]
  - Septic shock [Fatal]

NARRATIVE: CASE EVENT DATE: 20200626
